FAERS Safety Report 8282894-5 (Version None)
Quarter: 2012Q2

REPORT INFORMATION
  Report Type: 
  Country: None (occurrence: None)
  Receive Date: 20120413
  Receipt Date: 20120331
  Transmission Date: 20120825
  Serious: Yes (Other)
  Sender: FDA-Public Use
  Company Number: CA-ROCHE-776768

PATIENT
  Sex: Female
  Weight: 80.7 kg

DRUGS (13)
  1. ACTEMRA [Suspect]
     Route: 042
     Dates: start: 20110419, end: 20110419
  2. ACTEMRA [Suspect]
     Dosage: DOSE INTERRUPTED FOR 2 WEEKS
     Route: 042
     Dates: start: 20110520, end: 20110520
  3. ACTEMRA [Suspect]
  4. ACTEMRA [Suspect]
     Dates: start: 20111107, end: 20111107
  5. ACTEMRA [Suspect]
     Route: 042
     Dates: start: 20110323, end: 20110323
  6. METHOTREXATE [Concomitant]
     Route: 058
  7. SYNTHROID [Concomitant]
  8. PREDNISONE TAB [Concomitant]
  9. ACTEMRA [Suspect]
     Indication: RHEUMATOID ARTHRITIS
     Dosage: STARTING DOSE: 8 MG/KG
     Route: 042
     Dates: start: 20110223, end: 20110223
  10. ACTEMRA [Suspect]
     Dates: start: 20111006, end: 20111006
  11. CALCIUM CARBONATE [Concomitant]
  12. PLAQUENIL [Concomitant]
     Route: 048
  13. FOLIC ACID [Concomitant]

REACTIONS (3)
  - HYPERSENSITIVITY [None]
  - HEADACHE [None]
  - DIVERTICULITIS [None]
